FAERS Safety Report 4467309-7 (Version None)
Quarter: 2004Q4

REPORT INFORMATION
  Report Type: 
  Country: None (occurrence: None)
  Receive Date: 20041006
  Receipt Date: 20040924
  Transmission Date: 20050328
  Serious: Yes (Life-Threatening)
  Sender: FDA-Public Use
  Company Number: 379650

PATIENT
  Age: 80 Year
  Sex: Female

DRUGS (7)
  1. CARVEDILOL [Suspect]
     Route: 048
  2. PANALDINE [Suspect]
     Dosage: 100MG TWICE PER DAY
     Route: 048
     Dates: start: 20031025, end: 20031124
  3. ASPIRIN [Suspect]
  4. PRERAN [Suspect]
     Route: 048
  5. BLOPRESS [Suspect]
     Route: 048
  6. MEVALOTIN [Suspect]
     Route: 048
  7. MAGNESIUM OXIDE [Concomitant]

REACTIONS (3)
  - AGRANULOCYTOSIS [None]
  - INFECTION [None]
  - WHITE BLOOD CELL COUNT DECREASED [None]
